FAERS Safety Report 23200901 (Version 3)
Quarter: 2023Q4

REPORT INFORMATION
  Report Type: Report from Study
  Country: US (occurrence: US)
  Receive Date: 20231118
  Receipt Date: 20231207
  Transmission Date: 20240110
  Serious: Yes (Other)
  Sender: FDA-Public Use
  Company Number: US-ALXN-A202312885AA

PATIENT
  Age: 64 Year
  Sex: Male

DRUGS (1)
  1. ULTOMIRIS [Suspect]
     Active Substance: RAVULIZUMAB-CWVZ
     Indication: Myasthenia gravis
     Dosage: UNK
     Route: 065
     Dates: start: 202307

REACTIONS (10)
  - Hemiparesis [Unknown]
  - Visual impairment [Not Recovered/Not Resolved]
  - Chest pain [Unknown]
  - Pain in extremity [Unknown]
  - Cyst [Unknown]
  - Hypoaesthesia [Unknown]
  - Mass [Not Recovered/Not Resolved]
  - Headache [Not Recovered/Not Resolved]
  - Back pain [Unknown]
  - Spinal disorder [Unknown]

NARRATIVE: CASE EVENT DATE: 20230901
